FAERS Safety Report 5639720-X (Version None)
Quarter: 2008Q1

REPORT INFORMATION
  Report Type: 
  Country: None (occurrence: None)
  Receive Date: 20080131
  Receipt Date: 20071220
  Transmission Date: 20080703
  Serious: Yes (Hospitalization)
  Sender: FDA-Public Use
  Company Number: 163-21880-07110310

PATIENT
  Age: 84 Year
  Sex: Female

DRUGS (3)
  1. REVLIMID [Suspect]
     Indication: MYELODYSPLASTIC SYNDROME
     Dosage: 2.5 MG, 1 IN 2 D, ORAL
     Route: 048
     Dates: start: 20070918
  2. ASPIRIN [Concomitant]
  3. DIGOXIN [Concomitant]

REACTIONS (4)
  - ARTHROPATHY [None]
  - DRY MOUTH [None]
  - HEADACHE [None]
  - PAIN [None]
